FAERS Safety Report 10428457 (Version 2)
Quarter: 2016Q4

REPORT INFORMATION
  Report Type: Spontaneous
  Country: PH (occurrence: PH)
  Receive Date: 20140903
  Receipt Date: 20161007
  Transmission Date: 20170206
  Serious: Yes (Hospitalization)
  Sender: FDA-Public Use
  Company Number: PH-ABBVIE-14P-128-1278398-00

PATIENT
  Age: 17 Year
  Sex: Female

DRUGS (5)
  1. PHENOBARBITAL. [Suspect]
     Active Substance: PHENOBARBITAL
     Indication: EPILEPSY
     Route: 048
     Dates: start: 20121002, end: 20121003
  2. PLACEBO [Suspect]
     Active Substance: UNSPECIFIED INGREDIENT
     Indication: EPILEPSY
     Route: 048
     Dates: start: 20120524, end: 20120822
  3. PLACEBO [Suspect]
     Active Substance: UNSPECIFIED INGREDIENT
     Route: 048
     Dates: start: 20121003, end: 20121004
  4. VALPROIC ACID. [Suspect]
     Active Substance: VALPROIC ACID
     Indication: EPILEPSY
     Route: 048
     Dates: start: 20120917, end: 20121121
  5. PHENOBARBITAL. [Suspect]
     Active Substance: PHENOBARBITAL
     Route: 048
     Dates: start: 20121004, end: 20121126

REACTIONS (6)
  - Dyskinesia [Unknown]
  - Hypotonia [Unknown]
  - Drug withdrawal convulsions [Recovered/Resolved]
  - Staring [Unknown]
  - Mobility decreased [Unknown]
  - Generalised tonic-clonic seizure [Unknown]

NARRATIVE: CASE EVENT DATE: 20121204
